FAERS Safety Report 7388534-1 (Version None)
Quarter: 2011Q2

REPORT INFORMATION
  Report Type: 
  Country: None (occurrence: None)
  Receive Date: 20110401
  Receipt Date: 20110328
  Transmission Date: 20111010
  Serious: Yes (Hospitalization)
  Sender: FDA-Public Use
  Company Number: TR-PFIZER INC-2011068978

PATIENT
  Age: 48 Year

DRUGS (3)
  1. SOMATOLINE [Concomitant]
     Dosage: 129 MG, MONTHLY
  2. SANDOSTATIN [Concomitant]
     Dosage: 0.1 MG/ML, 3X/DAY
  3. SOMAVERT [Suspect]
     Indication: ACROMEGALY

REACTIONS (3)
  - ARRHYTHMIA [None]
  - MYOCARDIAL INFARCTION [None]
  - CARDIOMEGALY [None]
